FAERS Safety Report 8775853 (Version 5)
Quarter: 2012Q4

REPORT INFORMATION
  Report Type: Report from Study
  Country: ES (occurrence: ES)
  Receive Date: 20120910
  Receipt Date: 20121218
  Transmission Date: 20130627
  Serious: Yes (Life-Threatening)
  Sender: FDA-Public Use
  Company Number: ES-ROCHE-1087105

PATIENT
  Age: 52 Year
  Sex: Male
  Weight: 77 kg

DRUGS (9)
  1. VEMURAFENIB [Suspect]
     Indication: MALIGNANT MELANOMA
     Dosage: last dose prior to the event 10/Jul/2012
     Route: 048
     Dates: start: 20120621
  2. AMLODIPIN [Concomitant]
     Route: 065
     Dates: start: 20120618
  3. CITALOPRAM [Concomitant]
     Route: 065
     Dates: start: 20120618
  4. LORAZEPAM [Concomitant]
     Route: 065
     Dates: start: 20120618
  5. FORTECORTIN [Concomitant]
     Route: 065
     Dates: start: 20120618
  6. MST [Concomitant]
     Route: 065
     Dates: start: 20120618
  7. MOVICOL [Concomitant]
     Route: 065
     Dates: start: 20120618
  8. OMEPRAZOL [Concomitant]
     Route: 065
     Dates: start: 20120618
  9. HUMULINA [Concomitant]
     Route: 065
     Dates: start: 20120618, end: 20120719

REACTIONS (1)
  - Colitis [Recovered/Resolved with Sequelae]
